FAERS Safety Report 5811146-5 (Version None)
Quarter: 2008Q3

REPORT INFORMATION
  Report Type: 
  Country: None (occurrence: None)
  Receive Date: 20080710
  Receipt Date: 20080625
  Transmission Date: 20090109
  Serious: Yes (Death)
  Sender: FDA-Public Use
  Company Number: S08-UKI-02252-01

PATIENT
  Age: 69 Year
  Sex: Male

DRUGS (8)
  1. MEMANTINE HCL [Suspect]
     Indication: DEMENTIA
     Dosage: 5 MG QD PO
     Route: 048
     Dates: start: 20080522, end: 20080601
  2. MEMANTINE HCL [Suspect]
     Indication: EMOTIONAL DISTRESS
     Dosage: 5 MG QD PO
     Route: 048
     Dates: start: 20080522, end: 20080601
  3. CITALOPRAM HYDROBROMIDE [Concomitant]
  4. CARBAMAZEPINE [Concomitant]
  5. LEVETIRACETAM [Concomitant]
  6. LORAZEPAM [Concomitant]
  7. OLANZAPINE [Concomitant]
  8. TRAZODONE HCL [Concomitant]

REACTIONS (4)
  - CARDIO-RESPIRATORY ARREST [None]
  - CONVULSION [None]
  - PETIT MAL EPILEPSY [None]
  - SUDDEN DEATH [None]
